FAERS Safety Report 14481775 (Version 1)
Quarter: 2018Q1

REPORT INFORMATION
  Report Type: Spontaneous
  Country: NL (occurrence: NL)
  Receive Date: 20180202
  Receipt Date: 20180202
  Transmission Date: 20180509
  Serious: Yes (Other)
  Sender: FDA-Public Use
  Company Number: NL-BAYER-2018-016292

PATIENT
  Age: 35 Year
  Sex: Male

DRUGS (3)
  1. PRAZIQUANTEL [Suspect]
     Active Substance: PRAZIQUANTEL
     Indication: ECHINOCOCCIASIS
     Dosage: UNK
  2. CIMETIDINE [Interacting]
     Active Substance: CIMETIDINE
     Indication: ECHINOCOCCIASIS
     Dosage: UNK
  3. ALBENDAZOLE [Interacting]
     Active Substance: ALBENDAZOLE
     Indication: ECHINOCOCCIASIS
     Dosage: UNK

REACTIONS (4)
  - Cyst rupture [None]
  - Product use in unapproved indication [None]
  - Off label use [None]
  - Drug interaction [None]
